FAERS Safety Report 5401908-0 (Version None)
Quarter: 2007Q3

REPORT INFORMATION
  Report Type: 
  Country: None (occurrence: None)
  Receive Date: 20070726
  Receipt Date: 20070716
  Transmission Date: 20080115
  Serious: Yes (Other)
  Sender: FDA-Public Use
  Company Number: TUK2007A00053

PATIENT
  Age: 55 Year
  Sex: Male

DRUGS (14)
  1. ACTOS [Suspect]
     Indication: DIABETES MELLITUS
     Dosage: 15 MG, PER ORAL
     Route: 048
     Dates: start: 20070420, end: 20070515
  2. ASPIRIN (ACETYLSALTCYLIC ACID) [Concomitant]
  3. BACLOFEN [Concomitant]
  4. FENTANYL [Concomitant]
  5. LANTUS [Concomitant]
  6. GLICLAZIDE (GLICLAZIDE) [Concomitant]
  7. NITROFURANTOIN [Concomitant]
  8. TRIMETHOPRIM [Concomitant]
  9. NOVORAPID (INSULIN ASPART) [Concomitant]
  10. SIMVASTATIN [Concomitant]
  11. RAMIPRIL [Concomitant]
  12. TOLTERODINE TARTRATE [Concomitant]
  13. PREGABALIN (PREGABALIN) [Concomitant]
  14. GLYCERYL TRINITRATE (GLYCERYL TRINITRATE) [Concomitant]

REACTIONS (2)
  - ANGINA PECTORIS [None]
  - CHEST PAIN [None]
